FAERS Safety Report 17377103 (Version 1)
Quarter: 2020Q1

REPORT INFORMATION
  Report Type: Spontaneous
  Country: US (occurrence: US)
  Receive Date: 20200206
  Receipt Date: 20200206
  Transmission Date: 20200409
  Serious: No
  Sender: FDA-Public Use
  Company Number: US-KYOWAKIRIN-2020BKK001097

PATIENT

DRUGS (4)
  1. SINEMET [Concomitant]
     Active Substance: CARBIDOPA\LEVODOPA
     Indication: PRODUCT USED FOR UNKNOWN INDICATION
     Dosage: UNKNOWN
     Route: 065
  2. FLUTICORT [Concomitant]
     Active Substance: FLUTICASONE PROPIONATE
     Indication: BLOOD POTASSIUM INCREASED
  3. NOURIANZ [Suspect]
     Active Substance: ISTRADEFYLLINE
     Indication: PARKINSON^S DISEASE
     Dosage: UNKNOWN, ONCE DAILY
     Route: 065
     Dates: start: 202001
  4. FLUTICORT [Concomitant]
     Active Substance: FLUTICASONE PROPIONATE
     Indication: BLOOD PRESSURE DECREASED
     Dosage: UNKNOWN
     Route: 065

REACTIONS (5)
  - Dyskinesia [Unknown]
  - Product dose omission [Unknown]
  - Fall [Unknown]
  - Therapeutic response unexpected [Unknown]
  - Balance disorder [Unknown]

NARRATIVE: CASE EVENT DATE: 202001
